FAERS Safety Report 25619199 (Version 1)
Quarter: 2025Q3

REPORT INFORMATION
  Report Type: Spontaneous
  Country: JP (occurrence: JP)
  Receive Date: 20250729
  Receipt Date: 20250729
  Transmission Date: 20251021
  Serious: Yes (Death, Other)
  Sender: CLINIGEN
  Company Number: JP-CLINIGEN-CLI2025000079

PATIENT

DRUGS (4)
  1. FOSCAVIR [Suspect]
     Active Substance: FOSCARNET SODIUM
     Indication: Cytomegalovirus enterocolitis
     Route: 065
     Dates: start: 20250605
  2. FOSCAVIR [Suspect]
     Active Substance: FOSCARNET SODIUM
     Route: 065
     Dates: start: 20250613
  3. FOSCAVIR [Suspect]
     Active Substance: FOSCARNET SODIUM
     Route: 065
     Dates: start: 20250618, end: 20250622
  4. GANCICLOVIR [Concomitant]
     Active Substance: GANCICLOVIR
     Indication: Product used for unknown indication
     Route: 065
     Dates: start: 20250514, end: 20250522

REACTIONS (4)
  - Blood sodium increased [Not Recovered/Not Resolved]
  - Pneumonia [Fatal]
  - Off label use [Unknown]
  - Blood chloride increased [Not Recovered/Not Resolved]

NARRATIVE: CASE EVENT DATE: 20250605
